FAERS Safety Report 21225360 (Version 3)
Quarter: 2022Q3

REPORT INFORMATION
  Report Type: Other
  Country: AT (occurrence: AT)
  Receive Date: 20220817
  Receipt Date: 20220831
  Transmission Date: 20221027
  Serious: No
  Sender: FDA-Public Use
  Company Number: AT-CELLTRION INC.-2022AT011913

PATIENT

DRUGS (6)
  1. RITUXIMAB [Suspect]
     Active Substance: RITUXIMAB
     Indication: Diffuse large B-cell lymphoma
     Dosage: 1ST SYSTEMIC TREATMENT - 6 CYCLES
     Route: 042
     Dates: start: 202009, end: 202102
  2. OXALIPLATIN [Suspect]
     Active Substance: OXALIPLATIN
     Indication: Diffuse large B-cell lymphoma
     Dosage: 3 RD SYSTEMIC TREATMENT
     Dates: start: 20220602, end: 20220704
  3. GEMCITABINE [Suspect]
     Active Substance: GEMCITABINE
     Indication: Diffuse large B-cell lymphoma
     Dosage: 3 RD SYSTEMIC TREATMENT
     Dates: start: 20220602, end: 20220704
  4. LENALIDOMIDE [Suspect]
     Active Substance: LENALIDOMIDE
     Indication: Diffuse large B-cell lymphoma
     Dosage: 2 ND SYSTEMIC TREATMENT
     Dates: start: 202104, end: 202205
  5. BENDAMUSTINE [Suspect]
     Active Substance: BENDAMUSTINE
     Indication: Diffuse large B-cell lymphoma
     Dosage: 1ST SYSTEMIC TREATMENT - 6 CYCLES
     Dates: start: 202009, end: 202102
  6. POLIVY [Suspect]
     Active Substance: POLATUZUMAB VEDOTIN-PIIQ
     Indication: Diffuse large B-cell lymphoma
     Dosage: 1ST SYSTEMIC TREATMENT - 6 CYCLES
     Dates: start: 202009, end: 202102

REACTIONS (5)
  - Disease progression [Unknown]
  - Alanine aminotransferase decreased [Unknown]
  - Blood bilirubin decreased [Unknown]
  - Aspartate aminotransferase decreased [Unknown]
  - Off label use [Unknown]
